FAERS Safety Report 6913072-7 (Version None)
Quarter: 2010Q3

REPORT INFORMATION
  Report Type: 
  Country: None (occurrence: None)
  Receive Date: 20100806
  Receipt Date: 20090622
  Transmission Date: 20110219
  Serious: No
  Sender: FDA-Public Use
  Company Number: US-PFIZER INC-2009170619

PATIENT
  Sex: Male
  Weight: 142 kg

DRUGS (4)
  1. GLIPIZIDE [Suspect]
     Indication: BLOOD GLUCOSE INCREASED
     Dosage: UNK
  2. METFORMIN HCL [Suspect]
     Indication: BLOOD GLUCOSE INCREASED
     Dosage: UNK
  3. SITAGLIPTIN [Concomitant]
  4. LISINOPRIL [Concomitant]

REACTIONS (1)
  - BLOOD GLUCOSE INCREASED [None]
